FAERS Safety Report 15984448 (Version 1)
Quarter: 2019Q1

REPORT INFORMATION
  Report Type: Spontaneous
  Country: US (occurrence: US)
  Receive Date: 20190220
  Receipt Date: 20190220
  Transmission Date: 20190418
  Serious: Yes (Death, Other)
  Sender: FDA-Public Use
  Company Number: US-PFIZER INC-2019077557

PATIENT
  Age: 24 Year
  Sex: Female

DRUGS (3)
  1. NEXIUM [Suspect]
     Active Substance: ESOMEPRAZOLE MAGNESIUM
     Dosage: 40 MG, 1X/DAY
     Route: 048
  2. PROTONIX [Suspect]
     Active Substance: PANTOPRAZOLE SODIUM
     Dosage: 40 MG, 1X/DAY
     Route: 048
  3. PREVACID [Suspect]
     Active Substance: LANSOPRAZOLE
     Dosage: 30 MG, 1X/DAY
     Route: 048

REACTIONS (1)
  - End stage renal disease [Fatal]
